FAERS Safety Report 14526926 (Version 3)
Quarter: 2018Q1

REPORT INFORMATION
  Report Type: Spontaneous
  Country: US (occurrence: US)
  Receive Date: 20180213
  Receipt Date: 20180331
  Transmission Date: 20180509
  Serious: No
  Sender: FDA-Public Use
  Company Number: PHEH2018US005215

PATIENT
  Sex: Female
  Weight: 128 kg

DRUGS (1)
  1. BIMATOPROST. [Suspect]
     Active Substance: BIMATOPROST
     Indication: MADAROSIS
     Dosage: ONE BRUSH ON EYELASHES DAILY AT NIGHT
     Route: 065
     Dates: start: 20180117

REACTIONS (2)
  - Drug ineffective [Unknown]
  - Madarosis [Not Recovered/Not Resolved]
